FAERS Safety Report 5847604-7 (Version None)
Quarter: 2008Q3

REPORT INFORMATION
  Report Type: 
  Country: None (occurrence: None)
  Receive Date: 20080815
  Receipt Date: 20080815
  Transmission Date: 20090109
  Serious: Yes (Disabling)
  Sender: FDA-Public Use
  Company Number: None

PATIENT
  Age: 78 Year
  Sex: Male
  Weight: 78.0187 kg

DRUGS (1)
  1. FLOMAX [Suspect]
     Indication: PROSTATOMEGALY
     Dosage: ONE PER DAY 7 DAYS
     Dates: start: 20070622, end: 20070628

REACTIONS (2)
  - EJACULATION DISORDER [None]
  - PROSTATIC ATROPHY [None]
